FAERS Safety Report 6720465-X (Version None)
Quarter: 2010Q2

REPORT INFORMATION
  Report Type: 
  Country: None (occurrence: None)
  Receive Date: 20100511
  Receipt Date: 20100505
  Transmission Date: 20101027
  Serious: Yes (Life-Threatening, Hospitalization)
  Sender: FDA-Public Use
  Company Number: US-GENENTECH-300648

PATIENT
  Sex: Female
  Weight: 54 kg

DRUGS (15)
  1. XOLAIR [Suspect]
     Indication: ASTHMA
     Dosage: 375 MG, Q2W
     Route: 058
     Dates: start: 20100412, end: 20100414
  2. SOLU-MEDROL [Suspect]
     Indication: DRUG USE FOR UNKNOWN INDICATION
  3. ALBUTEROL [Concomitant]
     Indication: DRUG USE FOR UNKNOWN INDICATION
     Dosage: UNK
  4. RACEMIC EPINEPHRINE [Concomitant]
     Indication: DRUG USE FOR UNKNOWN INDICATION
  5. ADVAIR DISKUS 100/50 [Concomitant]
     Indication: DRUG USE FOR UNKNOWN INDICATION
     Dosage: UNK
  6. THEOPHYLLINE [Concomitant]
     Indication: DRUG USE FOR UNKNOWN INDICATION
     Dosage: 200 MG, BID
  7. SINGULAIR [Concomitant]
     Indication: DRUG USE FOR UNKNOWN INDICATION
     Dosage: 10 MG, QHS
  8. ZYRTEC [Concomitant]
     Indication: DRUG USE FOR UNKNOWN INDICATION
     Dosage: 10 MG, QHS
  9. ADVAIR DISKUS 100/50 [Concomitant]
     Indication: ASTHMA
     Dosage: UNK
  10. THEOPHYLLAMINE [Concomitant]
     Indication: ASTHMA
     Dosage: UNK
  11. ZYRTEC [Concomitant]
     Indication: RHINITIS ALLERGIC
     Dosage: UNK
  12. SINGULAIR [Concomitant]
     Indication: ASTHMA
     Dosage: UNK
  13. SINGULAIR [Concomitant]
     Indication: RHINITIS ALLERGIC
  14. ALBUTEROL [Concomitant]
     Indication: ASTHMA
     Dosage: UNK
  15. MOMETASONE FUROATE [Concomitant]
     Indication: DERMATITIS ATOPIC
     Dosage: UNK
     Dates: start: 20100316

REACTIONS (10)
  - DIZZINESS [None]
  - FLUSHING [None]
  - LIP SWELLING [None]
  - NAUSEA [None]
  - PRURITUS [None]
  - RASH [None]
  - STRIDOR [None]
  - SWELLING FACE [None]
  - VOMITING [None]
  - WHEEZING [None]
